FAERS Safety Report 12866333 (Version 1)
Quarter: 2016Q4

REPORT INFORMATION
  Report Type: Spontaneous
  Country: US (occurrence: US)
  Receive Date: 20161020
  Receipt Date: 20161020
  Transmission Date: 20170207
  Serious: No
  Sender: FDA-Public Use
  Company Number: US-JNJFOC-20160929538

PATIENT
  Age: 90 Year
  Sex: Female
  Weight: 60.78 kg

DRUGS (2)
  1. NIZORAL A-D [Suspect]
     Active Substance: KETOCONAZOLE
     Indication: RASH
     Dosage: NICKLE SIZE 1 OR 2 TIMES A DAY
     Route: 065
  2. CALCIUM [Concomitant]
     Active Substance: CALCIUM
     Indication: MINERAL SUPPLEMENTATION
     Route: 065

REACTIONS (3)
  - Off label use [Unknown]
  - Product label issue [Unknown]
  - Drug ineffective for unapproved indication [Unknown]
